FAERS Safety Report 4692749-0 (Version None)
Quarter: 2005Q2

REPORT INFORMATION
  Report Type: 
  Country: None (occurrence: None)
  Receive Date: 20050617
  Receipt Date: 20050606
  Transmission Date: 20051028
  Serious: Yes (Other)
  Sender: FDA-Public Use
  Company Number: AU-GLAXOSMITHKLINE-B0384096A

PATIENT
  Age: 50 Year
  Sex: Female

DRUGS (2)
  1. SERETIDE [Suspect]
     Indication: ASTHMA
  2. POLYPHARMACY [Concomitant]

REACTIONS (6)
  - APHONIA [None]
  - CHEST DISCOMFORT [None]
  - DRUG HYPERSENSITIVITY [None]
  - DYSPHONIA [None]
  - HEPATOCELLULAR DAMAGE [None]
  - JAUNDICE [None]
